FAERS Safety Report 4273242-6 (Version None)
Quarter: 2004Q1

REPORT INFORMATION
  Report Type: 
  Country: None (occurrence: None)
  Receive Date: 20040116
  Receipt Date: 20030512
  Transmission Date: 20041129
  Serious: Yes (Hospitalization)
  Sender: FDA-Public Use
  Company Number: PL-ROCHE-337768

PATIENT
  Age: 24 Year
  Sex: Female
  Weight: 58 kg

DRUGS (3)
  1. PEG-INTERFERON ALFA 2A (RO 25-8310) [Suspect]
     Route: 030
     Dates: start: 20030526
  2. PEG-INTERFERON ALFA 2A (RO 25-8310) [Suspect]
     Route: 030
     Dates: start: 20020909, end: 20030512
  3. PEG-INTERFERON ALFA 2A (RO 25-8310) [Suspect]
     Route: 030
     Dates: start: 20030526

REACTIONS (3)
  - ANAEMIA [None]
  - IRON DEFICIENCY [None]
  - MENORRHAGIA [None]
